FAERS Safety Report 17295724 (Version 7)
Quarter: 2020Q4

REPORT INFORMATION
  Report Type: Spontaneous
  Country: US (occurrence: US)
  Receive Date: 20200121
  Receipt Date: 20201023
  Transmission Date: 20210113
  Serious: No
  Sender: FDA-Public Use
  Company Number: US-VERTEX PHARMACEUTICALS-2019-012539

PATIENT
  Age: 48 Year
  Sex: Female
  Weight: 53 kg

DRUGS (4)
  1. BUDESONIDE. [Suspect]
     Active Substance: BUDESONIDE
     Indication: EPISTAXIS
     Dosage: UNK
     Route: 065
  2. TRIKAFTA [Suspect]
     Active Substance: ELEXACAFTOR\IVACAFTOR\TEZACAFTOR
     Indication: CYSTIC FIBROSIS
     Dosage: ELEXACAFTOR 100MG/TEZACAFTOR 50MG/IVACAFTOR 75MG; IVACAFTOR 150MG, UNK FREQ
     Route: 048
     Dates: start: 20191203
  3. COLISTIMETHATE [COLISTIMETHATE SODIUM] [Concomitant]
     Active Substance: COLISTIMETHATE SODIUM
     Dosage: UNK
  4. SODIUM CHLORIDE. [Concomitant]
     Active Substance: SODIUM CHLORIDE
     Dosage: UNK

REACTIONS (19)
  - Paranasal sinus hypersecretion [Recovered/Resolved]
  - Ear discomfort [Recovered/Resolved]
  - Dry skin [Not Recovered/Not Resolved]
  - Blood sodium decreased [Recovered/Resolved]
  - Sinus headache [Recovered/Resolved]
  - Tinnitus [Not Recovered/Not Resolved]
  - Rhinorrhoea [Recovered/Resolved]
  - Liver function test increased [Recovered/Resolved]
  - Productive cough [Recovering/Resolving]
  - Nasal crusting [Recovered/Resolved]
  - Cervical discharge [Recovered/Resolved]
  - Hair texture abnormal [Not Recovered/Not Resolved]
  - Blood chloride decreased [Recovered/Resolved]
  - Initial insomnia [Recovered/Resolved]
  - Fluid retention [Recovered/Resolved]
  - Peripheral swelling [Not Recovered/Not Resolved]
  - Acne [Recovered/Resolved]
  - Nasal dryness [Unknown]
  - Epistaxis [Unknown]

NARRATIVE: CASE EVENT DATE: 201912
